FAERS Safety Report 4533104-3 (Version None)
Quarter: 2004Q4

REPORT INFORMATION
  Report Type: 
  Country: None (occurrence: None)
  Receive Date: 20041210
  Receipt Date: 20040916
  Transmission Date: 20050328
  Serious: No
  Sender: FDA-Public Use
  Company Number: 2004-00531

PATIENT
  Age: 68 Year
  Sex: Male
  Weight: 102 kg

DRUGS (4)
  1. VELCADE [Suspect]
     Indication: MULTIPLE MYELOMA
     Dosage: 2.90 MG 2/WEEK IV BOLUS
     Route: 040
     Dates: start: 20040713
  2. AVANDIA [Concomitant]
  3. AMARYL [Concomitant]
  4. VITAMIN B6 [Concomitant]

REACTIONS (1)
  - PAIN IN EXTREMITY [None]
